FAERS Safety Report 6290509-0 (Version None)
Quarter: 2009Q3

REPORT INFORMATION
  Report Type: 
  Country: None (occurrence: None)
  Receive Date: 20090730
  Receipt Date: 20090519
  Transmission Date: 20100115
  Serious: No
  Sender: FDA-Public Use
  Company Number: US-BRISTOL-MYERS SQUIBB COMPANY-14631360

PATIENT
  Age: 71 Year
  Sex: Male
  Weight: 73 kg

DRUGS (5)
  1. COUMADIN [Suspect]
     Indication: ATRIAL FIBRILLATION
     Dosage: 1 DF=1.5 AND 1MG.ADJUSTED ACCORDING TO PT INR LEVELS,CURRENTLY ON 4 OF 1.5MG(DAILY)
     Route: 048
  2. TRILIPIX [Suspect]
     Indication: BLOOD TRIGLYCERIDES INCREASED
     Dosage: TAKEN AT HOURS OF SLEEP
     Route: 048
     Dates: start: 20090213
  3. TRILIPIX [Suspect]
     Indication: HIGH DENSITY LIPOPROTEIN DECREASED
     Dosage: TAKEN AT HOURS OF SLEEP
     Route: 048
     Dates: start: 20090213
  4. RAMIPRIL [Concomitant]
  5. CARVEDILOL [Concomitant]

REACTIONS (2)
  - BLOOD DISORDER [None]
  - PROTHROMBIN TIME RATIO DECREASED [None]
